FAERS Safety Report 8170643-0 (Version None)
Quarter: 2012Q1

REPORT INFORMATION
  Report Type: 
  Country: None (occurrence: None)
  Receive Date: 20120228
  Receipt Date: 20120216
  Transmission Date: 20120608
  Serious: Yes (Other)
  Sender: FDA-Public Use
  Company Number: CA-ROCHE-1041161

PATIENT
  Sex: Female
  Weight: 86.26 kg

DRUGS (14)
  1. MABTHERA [Suspect]
     Indication: MICROSCOPIC POLYANGIITIS
     Route: 042
     Dates: start: 20120131, end: 20120131
  2. ACTONEL [Concomitant]
     Route: 048
     Dates: start: 20110119
  3. RABEPRAZOLE SODIUM [Concomitant]
     Route: 048
     Dates: start: 20110930
  4. DILAUDID [Concomitant]
     Route: 048
     Dates: start: 20111012
  5. VITAMIN B-12 [Concomitant]
     Dosage: 1000 MCG/ML
     Route: 058
     Dates: start: 20111110
  6. DIPHENHYDRAMINE HCL [Concomitant]
     Indication: PREMEDICATION
     Route: 048
     Dates: start: 20120131, end: 20120131
  7. METHYLPREDNISOLONE [Concomitant]
     Indication: PREMEDICATION
     Route: 042
     Dates: start: 20120131, end: 20120131
  8. APO-FOLIC [Concomitant]
     Route: 048
     Dates: start: 20110223
  9. ACETAMINOPHEN [Concomitant]
     Indication: PREMEDICATION
     Route: 048
     Dates: start: 20120131, end: 20120131
  10. HYDROMORPH CONTIN [Concomitant]
     Route: 048
     Dates: start: 20110923
  11. PROMETRIUM [Concomitant]
     Route: 048
     Dates: start: 20111123
  12. GABAPENTIN [Concomitant]
     Route: 048
     Dates: start: 20110920
  13. ESTRACE [Concomitant]
     Route: 048
     Dates: start: 20111014
  14. PREDNISONE TAB [Concomitant]
     Route: 048
     Dates: start: 20111005

REACTIONS (3)
  - PULMONARY EMBOLISM [None]
  - DIARRHOEA [None]
  - VOMITING [None]
